FAERS Safety Report 24261430 (Version 1)
Quarter: 2024Q3

REPORT INFORMATION
  Report Type: Spontaneous
  Country: US (occurrence: US)
  Receive Date: 20240829
  Receipt Date: 20240829
  Transmission Date: 20241017
  Serious: Yes (Hospitalization, Other)
  Sender: EMCURE
  Company Number: US-AVET LIFESCIENCES LTD-2024-AVET-000297

PATIENT
  Age: 67 Year
  Sex: Male
  Weight: 112 kg

DRUGS (1)
  1. VANCOMYCIN HYDROCHLORIDE [Suspect]
     Active Substance: VANCOMYCIN HYDROCHLORIDE
     Indication: Postoperative wound infection
     Dosage: 1.75 GRAM
     Route: 042

REACTIONS (7)
  - Circulatory collapse [Recovered/Resolved]
  - Acute myocardial infarction [Recovered/Resolved]
  - Lactic acidosis [Recovered/Resolved]
  - Respiratory acidosis [Recovered/Resolved]
  - Hypokalaemia [Recovered/Resolved]
  - Sternal fracture [Recovered/Resolved]
  - Anaphylactic shock [Unknown]
